FAERS Safety Report 4846529-3 (Version None)
Quarter: 2005Q4

REPORT INFORMATION
  Report Type: 
  Country: None (occurrence: None)
  Receive Date: 20051202
  Receipt Date: 20051118
  Transmission Date: 20060501
  Serious: Yes (Hospitalization)
  Sender: FDA-Public Use
  Company Number: AZAUS200500428

PATIENT
  Age: 78 Year
  Sex: Male
  Weight: 95.2554 kg

DRUGS (5)
  1. AZACITIDINE (AZACITIDINE) (INJECTION) [Suspect]
     Indication: ACUTE MYELOID LEUKAEMIA
     Dosage: 75 MG/M2 (DAILY X 7 DAYS), SUBCUTANEOUS
     Route: 058
     Dates: start: 20050906, end: 20050912
  2. GEMTUZUMAB OZOGAMICIN (GEMTUZUMAB OZOGAMICIN) [Suspect]
     Indication: ACUTE MYELOID LEUKAEMIA
     Dosage: 3 MG/M2 (ON DAY 8 OF CYCLE), INTRAVENOUS
     Route: 042
     Dates: start: 20050913, end: 20050913
  3. ACETAMINOPHEN [Concomitant]
  4. LEVOTHYROXINE SODIUM [Concomitant]
  5. DOCUSATE SODIUM (DOCUSATE SODIUM) [Concomitant]

REACTIONS (12)
  - ABDOMINAL PAIN LOWER [None]
  - ABDOMINAL PAIN UPPER [None]
  - BILIARY DYSKINESIA [None]
  - CAECITIS [None]
  - COMPUTERISED TOMOGRAM ABNORMAL [None]
  - CONSTIPATION [None]
  - IMMUNOSUPPRESSION [None]
  - LIVER DISORDER [None]
  - NEPHROLITHIASIS [None]
  - RENAL CYST [None]
  - SCAN ABDOMEN ABNORMAL [None]
  - SHOULDER PAIN [None]
